FAERS Safety Report 6747679-7 (Version None)
Quarter: 2010Q2

REPORT INFORMATION
  Report Type: 
  Country: None (occurrence: None)
  Receive Date: 20100528
  Receipt Date: 20100516
  Transmission Date: 20101027
  Serious: Yes (Hospitalization)
  Sender: FDA-Public Use
  Company Number: SI-ELI_LILLY_AND_COMPANY-SI201002004273

PATIENT
  Sex: Female

DRUGS (5)
  1. CYMBALTA [Suspect]
     Indication: BIPOLAR I DISORDER
     Dosage: 90 MG, UNKNOWN
     Route: 065
     Dates: start: 20081121, end: 20090601
  2. CYMBALTA [Suspect]
     Dosage: 60 MG, UNKNOWN
     Route: 065
     Dates: start: 20090601, end: 20090815
  3. LAMICTAL [Concomitant]
     Dosage: UNK, UNKNOWN
     Route: 065
  4. RISSET [Concomitant]
     Dosage: UNK, UNKNOWN
     Route: 065
  5. ANTIHYPERTENSIVES [Concomitant]
     Dosage: UNK, UNKNOWN
     Route: 065

REACTIONS (3)
  - BLOOD PRESSURE INCREASED [None]
  - DEPRESSION [None]
  - VISION BLURRED [None]
